FAERS Safety Report 4859503-8 (Version None)
Quarter: 2005Q4

REPORT INFORMATION
  Report Type: 
  Country: None (occurrence: None)
  Receive Date: 20051219
  Receipt Date: 20050615
  Transmission Date: 20060501
  Serious: No
  Sender: FDA-Public Use
  Company Number: US-GLAXOSMITHKLINE-A0563141A

PATIENT
  Age: 61 Year
  Sex: Male

DRUGS (1)
  1. NICODERM CQ [Suspect]
     Dates: start: 20050611, end: 20050614

REACTIONS (5)
  - DIPLOPIA [None]
  - HYPOAESTHESIA [None]
  - PALPITATIONS [None]
  - PARAESTHESIA [None]
  - STRABISMUS [None]
